FAERS Safety Report 13752255 (Version 5)
Quarter: 2019Q2

REPORT INFORMATION
  Report Type: Report from Study
  Country: US (occurrence: US)
  Receive Date: 20170713
  Receipt Date: 20190503
  Transmission Date: 20190711
  Serious: Yes (Other)
  Sender: FDA-Public Use
  Company Number: US-JAZZ-2017-US-004335

PATIENT
  Sex: Female

DRUGS (16)
  1. XYREM [Suspect]
     Active Substance: SODIUM OXYBATE
     Dosage: 4.5 G, BID
     Route: 048
     Dates: start: 201612
  2. XYREM [Suspect]
     Active Substance: SODIUM OXYBATE
     Indication: NARCOLEPSY
     Dosage: 2.25 G, BID
     Route: 048
     Dates: start: 201611, end: 201611
  3. NITROFURANTOIN. [Concomitant]
     Active Substance: NITROFURANTOIN
  4. LEVOTHYROXINE. [Concomitant]
     Active Substance: LEVOTHYROXINE
  5. ADDERALL [Concomitant]
     Active Substance: AMPHETAMINE ASPARTATE\AMPHETAMINE SULFATE\DEXTROAMPHETAMINE SACCHARATE\DEXTROAMPHETAMINE SULFATE
  6. FLUOXETINE HCL [Concomitant]
     Active Substance: FLUOXETINE HYDROCHLORIDE
  7. XYREM [Suspect]
     Active Substance: SODIUM OXYBATE
     Dosage: 3.5 G, BID
     Route: 048
  8. NUVARING [Concomitant]
     Active Substance: ETHINYL ESTRADIOL\ETONOGESTREL
  9. XYREM [Suspect]
     Active Substance: SODIUM OXYBATE
     Dosage: DOSE ADJUSTMENT
     Route: 048
     Dates: start: 201611, end: 201612
  10. NUVIGIL [Concomitant]
     Active Substance: ARMODAFINIL
  11. IBUPROFEN. [Concomitant]
     Active Substance: IBUPROFEN
  12. XYREM [Suspect]
     Active Substance: SODIUM OXYBATE
     Dosage: 3.75 G, BID
     Route: 048
  13. FIORICET [Concomitant]
     Active Substance: ACETAMINOPHEN\BUTALBITAL\CAFFEINE
  14. ABILIFY [Concomitant]
     Active Substance: ARIPIPRAZOLE
  15. SUMATRIPTAN. [Concomitant]
     Active Substance: SUMATRIPTAN
  16. NAPROXEN. [Concomitant]
     Active Substance: NAPROXEN

REACTIONS (8)
  - Condition aggravated [Recovering/Resolving]
  - Confusional state [Unknown]
  - Night sweats [Unknown]
  - Limb injury [Unknown]
  - Enuresis [Unknown]
  - Weight decreased [Recovering/Resolving]
  - Nasopharyngitis [Unknown]
  - Somnambulism [Unknown]
